FAERS Safety Report 21931033 (Version 1)
Quarter: 2023Q1

REPORT INFORMATION
  Report Type: Report from Study
  Country: BR (occurrence: BR)
  Receive Date: 20230131
  Receipt Date: 20230131
  Transmission Date: 20230417
  Serious: Yes (Death, Hospitalization, Other)
  Sender: FDA-Public Use
  Company Number: BR-002147023-NVSC2023BR015108

PATIENT
  Sex: Female

DRUGS (2)
  1. RIBOCICLIB [Suspect]
     Active Substance: RIBOCICLIB
     Indication: Breast cancer
     Dosage: UNK (STOP DATE: 15 DAYS AGO)
     Route: 065
  2. RIBOCICLIB [Suspect]
     Active Substance: RIBOCICLIB
     Dosage: UNK
     Route: 065

REACTIONS (10)
  - Breast cancer [Fatal]
  - Malignant neoplasm progression [Fatal]
  - Diabetes mellitus [Unknown]
  - Liver injury [Unknown]
  - Metastases to liver [Unknown]
  - Blood bilirubin abnormal [Unknown]
  - Behaviour disorder [Unknown]
  - Renal disorder [Unknown]
  - Blood pressure increased [Unknown]
  - Platelet count decreased [Unknown]
